FAERS Safety Report 7178878-0 (Version None)
Quarter: 2010Q4

REPORT INFORMATION
  Report Type: 
  Country: None (occurrence: None)
  Receive Date: 20101217
  Receipt Date: 20101217
  Transmission Date: 20110411
  Serious: Yes (Other)
  Sender: FDA-Public Use
  Company Number: None

PATIENT
  Age: 46 Year
  Sex: Female
  Weight: 83.9154 kg

DRUGS (1)
  1. CYMBALTA [Suspect]

REACTIONS (8)
  - DIARRHOEA [None]
  - DIZZINESS [None]
  - DRUG WITHDRAWAL SYNDROME [None]
  - HEADACHE [None]
  - IMPAIRED WORK ABILITY [None]
  - INFLUENZA LIKE ILLNESS [None]
  - NAUSEA [None]
  - TINNITUS [None]
